FAERS Safety Report 10549166 (Version 4)
Quarter: 2014Q4

REPORT INFORMATION
  Report Type: Spontaneous
  Country: GR (occurrence: GR)
  Receive Date: 20141028
  Receipt Date: 20141211
  Transmission Date: 20150529
  Serious: Yes (Other)
  Sender: FDA-Public Use
  Company Number: ALCN2014GR006022

PATIENT
  Age: 76 Year
  Sex: Female

DRUGS (1)
  1. VIGAMOX [Suspect]
     Active Substance: MOXIFLOXACIN HYDROCHLORIDE
     Indication: PROPHYLAXIS
     Dosage: 1 GTT, TID
     Route: 047
     Dates: start: 20141015, end: 20141018

REACTIONS (14)
  - Eye infection [Recovered/Resolved]
  - Eye pain [Recovered/Resolved]
  - Conjunctivitis [Unknown]
  - Ocular hyperaemia [Recovered/Resolved]
  - Secretion discharge [Unknown]
  - Visual impairment [Unknown]
  - Corneal abrasion [Unknown]
  - Concomitant disease progression [Unknown]
  - Foreign body sensation in eyes [Recovered/Resolved]
  - Product packaging issue [Unknown]
  - Macular hole [Unknown]
  - Corneal epithelium defect [Unknown]
  - Inflammation [Unknown]
  - Swelling face [Recovered/Resolved]

NARRATIVE: CASE EVENT DATE: 20141018
